FAERS Safety Report 10625647 (Version 1)
Quarter: 2014Q4

REPORT INFORMATION
  Report Type: Spontaneous
  Country: US (occurrence: None)
  Receive Date: 20141121
  Receipt Date: 20141121
  Transmission Date: 20150529
  Serious: No
  Sender: FDA-Public Use
  Company Number: 163-10004-14071563

PATIENT
  Age: 59 Year
  Sex: Female

DRUGS (9)
  1. FLANAX (NAPROXEN SODIUM) [Concomitant]
  2. ASTEPRO (AZELASTINE HYDROCHLORIDE) [Concomitant]
  3. METFORMIN [Concomitant]
     Active Substance: METFORMIN HYDROCHLORIDE
  4. METHOTREXATE (METHOTREXATE) [Concomitant]
     Active Substance: METHOTREXATE
  5. BENICAR [Concomitant]
     Active Substance: OLMESARTAN MEDOXOMIL
  6. OTEZLA [Suspect]
     Active Substance: APREMILAST
     Indication: PSORIATIC ARTHROPATHY
     Dosage: 2 IN 1 D, PO
     Route: 048
     Dates: start: 20140604
  7. CRESTOR [Concomitant]
     Active Substance: ROSUVASTATIN CALCIUM
  8. VALACYCLOVIR (VALACICLOVIR HYDROCHLORIDE) [Concomitant]
  9. PROAIR (FLUTICASONE PROPIONATE) [Concomitant]
     Active Substance: FLUTICASONE PROPIONATE

REACTIONS (1)
  - Nausea [None]

NARRATIVE: CASE EVENT DATE: 20140605
